FAERS Safety Report 4533061-X (Version None)
Quarter: 2004Q4

REPORT INFORMATION
  Report Type: 
  Country: None (occurrence: None)
  Receive Date: 20041221
  Receipt Date: 20041208
  Transmission Date: 20050328
  Serious: Yes (Hospitalization)
  Sender: FDA-Public Use
  Company Number: 200414639FR

PATIENT
  Age: 42 Year
  Sex: Male
  Weight: 85 kg

DRUGS (11)
  1. LOVENOX [Suspect]
     Route: 058
     Dates: start: 20041015, end: 20041115
  2. RIFADIN [Suspect]
     Route: 048
     Dates: start: 20041101, end: 20041122
  3. TOPALGIC [Suspect]
     Route: 048
     Dates: start: 20041114, end: 20041122
  4. IDARAC [Suspect]
     Route: 048
     Dates: start: 20041023, end: 20041023
  5. VANCOCIN HCL [Concomitant]
     Route: 042
     Dates: start: 20041115
  6. CALCIPARINE [Concomitant]
     Route: 058
     Dates: start: 20041115
  7. AMAREL [Concomitant]
     Route: 048
  8. ATARAX [Concomitant]
     Route: 048
     Dates: start: 20041017
  9. PEVARYL [Concomitant]
     Route: 003
  10. FORLAX [Concomitant]
     Dates: start: 20041015
  11. DALACINE [Concomitant]
     Dates: start: 20041122

REACTIONS (6)
  - ALANINE AMINOTRANSFERASE INCREASED [None]
  - ASPARTATE AMINOTRANSFERASE INCREASED [None]
  - CYTOLYTIC HEPATITIS [None]
  - EOSINOPHILIA [None]
  - INTERVERTEBRAL DISCITIS [None]
  - POST PROCEDURAL COMPLICATION [None]
